FAERS Safety Report 21607947 (Version 1)
Quarter: 2022Q4

REPORT INFORMATION
  Report Type: Spontaneous
  Country: US (occurrence: US)
  Receive Date: 20221117
  Receipt Date: 20221117
  Transmission Date: 20230112
  Serious: Yes (Other)
  Sender: FDA-Public Use
  Company Number: US-drreddys-LIT/USA/22/0157252

PATIENT
  Age: 60 Year
  Sex: Male

DRUGS (14)
  1. DOXORUBICIN HYDROCHLORIDE [Suspect]
     Active Substance: DOXORUBICIN HYDROCHLORIDE
     Indication: Mantle cell lymphoma
  2. DEXAMETHASONE SODIUM PHOSPHATE [Suspect]
     Active Substance: DEXAMETHASONE SODIUM PHOSPHATE
     Indication: Mantle cell lymphoma
  3. THIOTEPA [Suspect]
     Active Substance: THIOTEPA
     Indication: Chemotherapy
  4. BUSULFAN [Suspect]
     Active Substance: BUSULFAN
     Indication: Chemotherapy
  5. IBRUTINIB [Suspect]
     Active Substance: IBRUTINIB
     Indication: Mantle cell lymphoma
     Dosage: 560 MG/DAY
  6. IFOSFAMIDE [Suspect]
     Active Substance: IFOSFAMIDE
     Indication: Mantle cell lymphoma
     Dosage: CNS-DIRECTED SALVAGE CHEMOTHERAPY
  7. CARBOPLATIN [Suspect]
     Active Substance: CARBOPLATIN
     Indication: Mantle cell lymphoma
     Dosage: CNS-DIRECTED SALVAGE CHEMOTHERAPY
  8. ETOPOSIDE [Suspect]
     Active Substance: ETOPOSIDE
     Indication: Mantle cell lymphoma
     Dosage: CNS-DIRECTED SALVAGE CHEMOTHERAPY
  9. RITUXIMAB [Suspect]
     Active Substance: RITUXIMAB
     Indication: Mantle cell lymphoma
  10. RITUXIMAB [Suspect]
     Active Substance: RITUXIMAB
     Dosage: CNS-DIRECTED SALVAGE CHEMOTHERAPY
  11. CYCLOPHOSPHAMIDE [Suspect]
     Active Substance: CYCLOPHOSPHAMIDE
     Indication: Mantle cell lymphoma
  12. VINCRISTINE [Suspect]
     Active Substance: VINCRISTINE
     Indication: Mantle cell lymphoma
  13. METHOTREXATE [Suspect]
     Active Substance: METHOTREXATE
     Indication: Mantle cell lymphoma
     Route: 037
  14. METHOTREXATE [Suspect]
     Active Substance: METHOTREXATE
     Dosage: CNS-DIRECTED SALVAGE CHEMOTHERAPY

REACTIONS (3)
  - Pancytopenia [Unknown]
  - Myelopathy [Unknown]
  - Therapeutic response unexpected [Unknown]
